FAERS Safety Report 5627402-X (Version None)
Quarter: 2008Q1

REPORT INFORMATION
  Report Type: 
  Country: None (occurrence: None)
  Receive Date: 20080215
  Receipt Date: 20080204
  Transmission Date: 20080703
  Serious: Yes (Hospitalization)
  Sender: FDA-Public Use
  Company Number: AU-NOVOPROD-272167

PATIENT
  Sex: Male

DRUGS (3)
  1. NOVORAPID PENFILL [Suspect]
     Indication: DRUG USE FOR UNKNOWN INDICATION
  2. ACTRAPID [Concomitant]
  3. PREDNISOLONE [Concomitant]
     Route: 048

REACTIONS (1)
  - RESPIRATORY DISORDER [None]
